FAERS Safety Report 4823588-5 (Version None)
Quarter: 2005Q4

REPORT INFORMATION
  Report Type: 
  Country: None (occurrence: None)
  Receive Date: 20051102
  Receipt Date: 20051020
  Transmission Date: 20060501
  Serious: Yes (Other)
  Sender: FDA-Public Use
  Company Number: 200510684BFR

PATIENT
  Sex: Male

DRUGS (13)
  1. KOGENATE FS [Suspect]
     Dosage: 1000 IU, INTRAVENOUS
     Route: 042
     Dates: start: 19970101, end: 20030101
  2. KOGENATE FS [Suspect]
     Dosage: 1000 IU, INTRAVENOUS
     Route: 042
     Dates: start: 19970101, end: 20030101
  3. KOGENATE FS [Suspect]
     Dosage: 1000 IU, INTRAVENOUS
     Route: 042
     Dates: start: 19970101, end: 20030101
  4. KOGENATE FS [Suspect]
     Dosage: 1000 IU, INTRAVENOUS
     Route: 042
     Dates: start: 19970101, end: 20030101
  5. KOGENATE FS [Suspect]
     Dosage: 1000 IU, INTRAVENOUS
     Route: 042
     Dates: start: 19970101, end: 20030101
  6. KOGENATE FS [Suspect]
     Dosage: 1000 IU, INTRAVENOUS
     Route: 042
     Dates: start: 19970101, end: 20030101
  7. KOGENATE FS [Suspect]
     Dosage: 1000 IU, INTRAVENOUS
     Route: 042
     Dates: start: 19970101, end: 20030101
  8. KOGENATE FS [Suspect]
  9. KOGENATE FS [Suspect]
  10. KOGENATE FS [Suspect]
  11. KOGENATE FS [Suspect]
  12. KOGENATE FS [Suspect]
  13. KOGENATE FS [Suspect]

REACTIONS (1)
  - VIRAL HEPATITIS CARRIER [None]
